FAERS Safety Report 8834880 (Version 1)
Quarter: 2012Q4

REPORT INFORMATION
  Report Type: Spontaneous
  Country: DE (occurrence: None)
  Receive Date: 20121009
  Receipt Date: 20121009
  Transmission Date: 20130627
  Serious: Yes (Congenital Anomaly)
  Sender: FDA-Public Use
  Company Number: E2B_00000400

PATIENT
  Age: 23 Week
  Sex: Male

DRUGS (3)
  1. LEVETIRACETAM (UNKNOWN) [Suspect]
     Indication: EPILEPSY
     Dosage: 2000 mg (1000 mg, 2 in 1 D), Transplacental
     Route: 064
     Dates: start: 20110518, end: 20120204
  2. FOLIC ACID (FOLIOFORTE) [Concomitant]
  3. ERYTHROMYCIN (GEL) [Concomitant]

REACTIONS (5)
  - Hemivertebra [None]
  - Plagiocephaly [None]
  - Scoliosis [None]
  - Maternal drugs affecting foetus [None]
  - Ventouse extraction [None]
